FAERS Safety Report 6197723-3 (Version None)
Quarter: 2009Q2

REPORT INFORMATION
  Report Type: 
  Country: None (occurrence: None)
  Receive Date: 20090521
  Receipt Date: 20090520
  Transmission Date: 20091009
  Serious: Yes (Life-Threatening)
  Sender: FDA-Public Use
  Company Number: JP-B.I. PHARMACEUTICALS,INC./RIDGEFIELD-2009-BP-05983NB

PATIENT
  Sex: Female
  Weight: 52.8 kg

DRUGS (4)
  1. MICARDIS [Suspect]
     Indication: HYPERTENSION
     Dosage: 40MG
     Route: 048
  2. NITOROL R [Suspect]
     Dosage: 10MG
     Route: 048
  3. NORVASC [Suspect]
     Dosage: 20MG
     Route: 048
  4. LASIX [Concomitant]
     Dosage: 20MG
     Route: 048

REACTIONS (2)
  - BLOOD PRESSURE DECREASED [None]
  - BRADYCARDIA [None]
